FAERS Safety Report 12110056 (Version 1)
Quarter: 2016Q1

REPORT INFORMATION
  Report Type: Spontaneous
  Country: US (occurrence: None)
  Receive Date: 20160223
  Receipt Date: 20160223
  Transmission Date: 20160526
  Serious: Yes (Other)
  Sender: FDA-Public Use
  Company Number: None

PATIENT
  Age: 53 Year
  Sex: Female
  Weight: 0 kg

DRUGS (2)
  1. DAKLINZA [Concomitant]
     Active Substance: DACLATASVIR
  2. SOVALDI [Suspect]
     Active Substance: SOFOSBUVIR
     Dosage: 400

REACTIONS (2)
  - Renal function test abnormal [None]
  - Insomnia [None]

NARRATIVE: CASE EVENT DATE: 20160222
